FAERS Safety Report 9961318 (Version 1)
Quarter: 2014Q1

REPORT INFORMATION
  Report Type: Spontaneous
  Country: MM (occurrence: MM)
  Receive Date: 20140305
  Receipt Date: 20140305
  Transmission Date: 20141002
  Serious: Yes (Hospitalization)
  Sender: FDA-Public Use
  Company Number: MM-AMGEN-MMRSP2014015633

PATIENT
  Age: 46 Year
  Sex: Female

DRUGS (1)
  1. NEUPOGEN [Suspect]
     Indication: RENAL TRANSPLANT
     Dosage: 300 MUG, UNK
     Route: 058
     Dates: start: 20140216

REACTIONS (2)
  - Blood pressure increased [Recovered/Resolved]
  - Swelling face [Not Recovered/Not Resolved]
